FAERS Safety Report 8654296 (Version 2)
Quarter: 2012Q4

REPORT INFORMATION
  Report Type: 
  Country: US (occurrence: US)
  Receive Date: 20120709
  Receipt Date: 20121019
  Transmission Date: 20130627
  Serious: Yes (Other)
  Sender: FDA-Public Use
  Company Number: US-US-EMD SERONO, INC.-7144205

PATIENT
  Age: 9 Year
  Sex: Female

DRUGS (5)
  1. SAIZEN [(SOMATROPIN (RDNA ORIGIN) FOR INJECTION)] [Suspect]
     Indication: GROWTH RETARDATION
     Dates: start: 20081226
  2. LEVOTHYROXINE [Concomitant]
     Indication: PSEUDOHYPOPARATHYROIDISM
  3. CALCITROL [Concomitant]
     Indication: PSEUDOHYPOPARATHYROIDISM
  4. CALCIUM [Concomitant]
     Indication: PSEUDOHYPOPARATHYROIDISM
  5. VITAMIN D [Concomitant]
     Indication: PSEUDOHYPOPARATHYROIDISM

REACTIONS (1)
  - Optic atrophy [Recovered/Resolved]
